FAERS Safety Report 23629644 (Version 1)
Quarter: 2024Q1

REPORT INFORMATION
  Report Type: Report from Study
  Country: US (occurrence: US)
  Receive Date: 20240314
  Receipt Date: 20240314
  Transmission Date: 20240409
  Serious: Yes (Other)
  Sender: FDA-Public Use
  Company Number: US-JNJFOC-20240327613

PATIENT

DRUGS (4)
  1. SIRTURO [Suspect]
     Active Substance: BEDAQUILINE FUMARATE
     Indication: Tuberculosis
     Route: 048
  2. PRETOMANID [Suspect]
     Active Substance: PRETOMANID
     Indication: Tuberculosis
     Route: 065
  3. LINEZOLID [Suspect]
     Active Substance: LINEZOLID
     Indication: Tuberculosis
     Route: 065
  4. MOXIFLOXACIN [Suspect]
     Active Substance: MOXIFLOXACIN
     Indication: Tuberculosis
     Route: 065

REACTIONS (12)
  - Suicide attempt [Unknown]
  - Deafness [Unknown]
  - Neuropathy peripheral [Unknown]
  - Renal impairment [Unknown]
  - Blindness [Unknown]
  - Hepatotoxicity [Unknown]
  - Depression [Unknown]
  - Cardiac disorder [Unknown]
  - Tinnitus [Unknown]
  - Vestibular disorder [Unknown]
  - Myalgia [Unknown]
  - Arthralgia [Unknown]
